FAERS Safety Report 14293135 (Version 2)
Quarter: 2018Q4

REPORT INFORMATION
  Report Type: Spontaneous
  Country: FR (occurrence: FR)
  Receive Date: 20171215
  Receipt Date: 20181109
  Transmission Date: 20190204
  Serious: Yes (Disabling)
  Sender: FDA-Public Use
  Company Number: FR-BAUSCH-BL-2017-034180

PATIENT
  Age: 45 Year
  Sex: Male

DRUGS (1)
  1. MONO-TILDIEM LP [Suspect]
     Active Substance: DILTIAZEM
     Indication: HYPERTENSION
     Route: 048
     Dates: start: 200101, end: 200701

REACTIONS (9)
  - Tremor [Unknown]
  - Pain [Unknown]
  - Parkinson^s disease [Not Recovered/Not Resolved]
  - Ill-defined disorder [Unknown]
  - Obesity [Unknown]
  - Gait disturbance [Unknown]
  - Extrapyramidal disorder [Unknown]
  - Mental disorder [Unknown]
  - Asthenia [Unknown]

NARRATIVE: CASE EVENT DATE: 200104
